FAERS Safety Report 24110496 (Version 1)
Quarter: 2024Q3

REPORT INFORMATION
  Report Type: Spontaneous
  Country: US (occurrence: US)
  Receive Date: 20240718
  Receipt Date: 20240718
  Transmission Date: 20241016
  Serious: No
  Sender: PFIZER
  Company Number: US-PFIZER INC-202400215105

PATIENT
  Sex: Female

DRUGS (1)
  1. LABETALOL HYDROCHLORIDE [Suspect]
     Active Substance: LABETALOL\LABETALOL HYDROCHLORIDE
     Dosage: 4800 MG OVER 24 HOURS

REACTIONS (5)
  - Overdose [Unknown]
  - Drug screen positive [Unknown]
  - Off label use [Unknown]
  - Product use issue [Unknown]
  - Maternal exposure timing unspecified [Unknown]
